FAERS Safety Report 7381726 (Version 4)
Quarter: 2013Q1

REPORT INFORMATION
  Report Type: Spontaneous
  Country: GB (occurrence: None)
  Receive Date: 20100427
  Receipt Date: 20130327
  Transmission Date: 20140127
  Serious: Yes (Other)
  Sender: FDA-Public Use
  Company Number: 08-AUR-05322

PATIENT
  Age: 28 Year
  Sex: Female
  Weight: 58 kg

DRUGS (4)
  1. CITALOPRAM (CITALOPRAM) [Suspect]
     Indication: PRODUCT USED FOR UNKNOWN INDICATION
     Dosage: 50MG, DAILY, ORAL (1 IN 1 D)
  2. CITALOPRAM (CITALOPRAM) [Suspect]
     Dosage: 50MG, DAILY, ORAL (1 IN 1 D)
  3. FLUOXETINE (FLUOXETINE) [Suspect]
     Indication: PRODUCT USED FOR UNKNOWN INDICATION
  4. SERTRALINE (SERTRALINE) [Suspect]
     Indication: DEPRESSION
     Route: 048
     Dates: start: 20080909, end: 20081003

REACTIONS (4)
  - Drug hypersensitivity [None]
  - Pruritus [None]
  - Joint swelling [None]
  - Urticaria [None]
